FAERS Safety Report 23228062 (Version 3)
Quarter: 2025Q3

REPORT INFORMATION
  Report Type: Spontaneous
  Country: EU (occurrence: EU)
  Receive Date: 20231125
  Receipt Date: 20250801
  Transmission Date: 20251021
  Serious: Yes (Hospitalization, Other)
  Sender: NOVARTIS
  Company Number: EU-ROCHE-3263140

PATIENT
  Age: 39 Year
  Sex: Female
  Weight: 75 kg

DRUGS (40)
  1. OFATUMUMAB [Suspect]
     Active Substance: OFATUMUMAB
     Indication: Multiple sclerosis
     Dosage: 20 MG, QW
     Route: 058
     Dates: start: 20221116, end: 20221130
  2. OFATUMUMAB [Suspect]
     Active Substance: OFATUMUMAB
     Dosage: 20 MG, Q4W
     Route: 058
     Dates: start: 20221214
  3. OFATUMUMAB [Suspect]
     Active Substance: OFATUMUMAB
     Dosage: 20 MG, QMO
     Route: 058
     Dates: start: 202212
  4. OCREVUS [Suspect]
     Active Substance: OCRELIZUMAB
     Indication: Multiple sclerosis
     Route: 042
     Dates: start: 20180927, end: 20181016
  5. OCREVUS [Suspect]
     Active Substance: OCRELIZUMAB
     Route: 042
     Dates: start: 20190326, end: 20220303
  6. DEXKETOPROFEN [Concomitant]
     Active Substance: DEXKETOPROFEN
     Indication: Pain
     Dosage: 50 MG, QD
     Route: 042
     Dates: start: 20210217, end: 20210217
  7. Ortoton [Concomitant]
     Indication: Pain
     Dosage: 100 MG, QD
     Route: 065
     Dates: start: 20210217, end: 20210217
  8. METHYLPREDNISOLONE [Concomitant]
     Active Substance: METHYLPREDNISOLONE
     Indication: Multiple sclerosis relapse
     Dosage: 1000 MG, QD
     Route: 042
     Dates: start: 20180907, end: 20180910
  9. Novalgin [Concomitant]
     Indication: Pain
     Route: 065
     Dates: start: 202102
  10. JANUVIA [Concomitant]
     Active Substance: SITAGLIPTIN PHOSPHATE
     Indication: Diabetes mellitus
     Dosage: 100 MG, QD
     Route: 048
     Dates: start: 201810, end: 201811
  11. JANUVIA [Concomitant]
     Active Substance: SITAGLIPTIN PHOSPHATE
     Route: 048
     Dates: start: 201811, end: 202202
  12. JANUVIA [Concomitant]
     Active Substance: SITAGLIPTIN PHOSPHATE
     Route: 048
     Dates: start: 202202
  13. FERRO-SANOL DUODENAL [Concomitant]
     Active Substance: FERROUS GLYCINE SULFATE
     Indication: Iron deficiency
     Route: 048
     Dates: start: 20190403, end: 20191030
  14. PNEUMOVAX 23 [Concomitant]
     Active Substance: PNEUMOCOCCAL VACCINE, POLYVALENT 23
     Indication: Immunisation
     Dosage: 0.5 ML, QD
     Route: 065
     Dates: start: 20180820, end: 20180820
  15. ESCITALOPRAM [Concomitant]
     Active Substance: ESCITALOPRAM OXALATE
     Indication: Depression
     Route: 048
     Dates: start: 2016, end: 20190104
  16. ESCITALOPRAM [Concomitant]
     Active Substance: ESCITALOPRAM OXALATE
     Dosage: 10 MG, QD
     Route: 048
     Dates: start: 20190105
  17. METHYLPREDNISOLONE [Concomitant]
     Active Substance: METHYLPREDNISOLONE
     Indication: Multiple sclerosis relapse
     Dosage: 1000 MG, QD
     Route: 042
     Dates: start: 20210222, end: 20210226
  18. LEVOTHYROXINE SODIUM [Concomitant]
     Active Substance: LEVOTHYROXINE SODIUM
     Indication: Hypothyroidism
     Dosage: 125 UG, QD
     Route: 048
     Dates: start: 2008, end: 20201114
  19. LEVOTHYROXINE SODIUM [Concomitant]
     Active Substance: LEVOTHYROXINE SODIUM
     Dosage: 100 UG, QD
     Route: 048
     Dates: start: 20201115, end: 202110
  20. LEVOTHYROXINE SODIUM [Concomitant]
     Active Substance: LEVOTHYROXINE SODIUM
     Route: 048
     Dates: start: 202110
  21. LEVOTHYROXINE SODIUM [Concomitant]
     Active Substance: LEVOTHYROXINE SODIUM
     Route: 048
     Dates: start: 202110
  22. IBUPROFEN [Concomitant]
     Active Substance: IBUPROFEN
     Indication: Pain
     Route: 048
     Dates: start: 202102
  23. ZOPICLONE [Concomitant]
     Active Substance: ZOPICLONE
     Indication: Product used for unknown indication
     Dosage: 3.75 MG, QD
     Route: 048
     Dates: start: 20210224, end: 20210226
  24. METFORMIN [Concomitant]
     Active Substance: METFORMIN HYDROCHLORIDE
     Indication: Diabetes mellitus
     Route: 048
     Dates: start: 201810, end: 20190219
  25. METFORMIN [Concomitant]
     Active Substance: METFORMIN HYDROCHLORIDE
     Dosage: 850 MG, QD
     Route: 048
     Dates: start: 20190220, end: 201906
  26. METFORMIN [Concomitant]
     Active Substance: METFORMIN HYDROCHLORIDE
     Route: 048
     Dates: start: 201906, end: 202002
  27. METFORMIN [Concomitant]
     Active Substance: METFORMIN HYDROCHLORIDE
     Dosage: 850 MG, QD
     Route: 048
     Dates: start: 202002, end: 202012
  28. METFORMIN [Concomitant]
     Active Substance: METFORMIN HYDROCHLORIDE
     Dosage: 500 MG, QD
     Route: 048
     Dates: start: 202012, end: 202112
  29. METFORMIN [Concomitant]
     Active Substance: METFORMIN HYDROCHLORIDE
     Route: 048
     Dates: start: 202112
  30. ETHINYL ESTRADIOL\LEVONORGESTREL ACETATE [Concomitant]
     Active Substance: ETHINYL ESTRADIOL\LEVONORGESTREL ACETATE
     Indication: Menstruation irregular
     Route: 048
     Dates: start: 20210114
  31. LEVEMIR [Concomitant]
     Active Substance: INSULIN DETEMIR
     Indication: Diabetes mellitus
     Dosage: 5 IU, QD
     Route: 058
     Dates: start: 201810, end: 201811
  32. LEVEMIR [Concomitant]
     Active Substance: INSULIN DETEMIR
     Route: 003
     Dates: start: 202102
  33. CHOLECALCIFEROL [Concomitant]
     Active Substance: CHOLECALCIFEROL
     Indication: Vitamin D deficiency
     Dosage: 20000 IU, QW
     Route: 048
     Dates: start: 201809
  34. Dexahexal [Concomitant]
     Indication: Pain
     Dosage: 4 MG, QD
     Route: 042
     Dates: start: 20210217, end: 20210217
  35. PREGABALIN [Concomitant]
     Active Substance: PREGABALIN
     Indication: Product used for unknown indication
     Route: 048
     Dates: start: 20190107
  36. PREGABALIN [Concomitant]
     Active Substance: PREGABALIN
     Dosage: 75 MG, QD
     Route: 048
     Dates: end: 20190227
  37. PREGABALIN [Concomitant]
     Active Substance: PREGABALIN
     Dosage: 75 MG, BID
     Route: 048
     Dates: start: 20190228
  38. Comirnaty [Concomitant]
     Indication: COVID-19 immunisation
     Route: 030
     Dates: start: 20210624, end: 20210624
  39. Comirnaty [Concomitant]
     Route: 030
     Dates: start: 20211116, end: 20211116
  40. Comirnaty [Concomitant]
     Route: 030
     Dates: start: 20210611, end: 20210611

REACTIONS (5)
  - Atypical pneumonia [Recovered/Resolved]
  - Syncope [Recovered/Resolved]
  - Secondary immunodeficiency [Not Recovered/Not Resolved]
  - Blood immunoglobulin G decreased [Unknown]
  - Blood immunoglobulin M decreased [Unknown]

NARRATIVE: CASE EVENT DATE: 20221221
